FAERS Safety Report 5110549-4 (Version None)
Quarter: 2006Q3

REPORT INFORMATION
  Report Type: 
  Country: None (occurrence: None)
  Receive Date: 20060918
  Receipt Date: 20060906
  Transmission Date: 20061208
  Serious: Yes (Other)
  Sender: FDA-Public Use
  Company Number: HQWYE420207SEP06

PATIENT
  Age: 1 Day
  Sex: Male

DRUGS (3)
  1. EFFEXOR XR [Suspect]
     Indication: DEPRESSION
     Dosage: SEE IMAGE
     Route: 048
     Dates: start: 20010101, end: 20030101
  2. EFFEXOR XR [Suspect]
     Indication: DEPRESSION
     Dosage: SEE IMAGE
     Route: 048
     Dates: start: 20030101
  3. VITAMINS (VITAMINS) [Concomitant]

REACTIONS (6)
  - COLLAPSE OF LUNG [None]
  - DRUG EXPOSURE DURING PREGNANCY [None]
  - INFANTILE ASTHMA [None]
  - NEONATAL RESPIRATORY FAILURE [None]
  - PREMATURE BABY [None]
  - RESPIRATORY DISORDER NEONATAL [None]
